FAERS Safety Report 14035492 (Version 1)
Quarter: 2017Q4

REPORT INFORMATION
  Report Type: Spontaneous
  Country: SE (occurrence: SE)
  Receive Date: 20171003
  Receipt Date: 20171003
  Transmission Date: 20180321
  Serious: Yes (Other)
  Sender: FDA-Public Use
  Company Number: SE-BAYER-2017-182903

PATIENT
  Age: 28 Year
  Sex: Female

DRUGS (4)
  1. MIRENA [Suspect]
     Active Substance: LEVONORGESTREL
     Indication: ENDOMETRIOSIS
     Dosage: 20 MCG/24HR, CONT
     Route: 015
     Dates: start: 20170228
  2. SIFROL [Concomitant]
     Active Substance: PRAMIPEXOLE
  3. VISANNE [Concomitant]
     Active Substance: DIENOGEST
  4. LORATADINE. [Concomitant]
     Active Substance: LORATADINE

REACTIONS (4)
  - Dysmenorrhoea [Not Recovered/Not Resolved]
  - Dyspareunia [Not Recovered/Not Resolved]
  - Metrorrhagia [Not Recovered/Not Resolved]
  - Mood swings [Not Recovered/Not Resolved]

NARRATIVE: CASE EVENT DATE: 2017
